FAERS Safety Report 8812057 (Version 1)
Quarter: 2012Q4

REPORT INFORMATION
  Report Type: Spontaneous
  Country: BE (occurrence: None)
  Receive Date: 20120924
  Receipt Date: 20120924
  Transmission Date: 20130627
  Serious: Yes (Hospitalization)
  Sender: FDA-Public Use
  Company Number: 2012033428

PATIENT
  Age: 71 Year
  Sex: Male

DRUGS (2)
  1. HIZENTRA [Suspect]
     Route: 058
     Dates: start: 20111028
  2. HIZENTRA [Suspect]

REACTIONS (1)
  - Hospitalisation [None]
